FAERS Safety Report 6850726-5 (Version None)
Quarter: 2010Q3

REPORT INFORMATION
  Report Type: 
  Country: None (occurrence: None)
  Receive Date: 20100716
  Receipt Date: 20071019
  Transmission Date: 20110219
  Serious: No
  Sender: FDA-Public Use
  Company Number: US-PFIZER INC-2007088956

PATIENT
  Sex: Male
  Weight: 90.9 kg

DRUGS (1)
  1. CHANTIX [Suspect]
     Indication: SMOKING CESSATION THERAPY
     Dates: start: 20070101, end: 20070101

REACTIONS (4)
  - ANXIETY [None]
  - DEPRESSION [None]
  - ERECTILE DYSFUNCTION [None]
  - MEDICATION ERROR [None]
